FAERS Safety Report 21878231 (Version 1)
Quarter: 2023Q1

REPORT INFORMATION
  Report Type: Spontaneous
  Country: NL (occurrence: NL)
  Receive Date: 20230118
  Receipt Date: 20230118
  Transmission Date: 20230417
  Serious: Yes (Life-Threatening, Other)
  Sender: FDA-Public Use
  Company Number: None

PATIENT
  Sex: Male
  Weight: 98 kg

DRUGS (3)
  1. COLCHICINE [Suspect]
     Active Substance: COLCHICINE
     Indication: Gout
     Dosage: 2-3X PER DAY 1 PIECE
     Route: 065
     Dates: start: 20221130, end: 20221202
  2. INDAPAMIDE\PERINDOPRIL [Suspect]
     Active Substance: INDAPAMIDE\PERINDOPRIL
     Indication: Hypertension
     Dosage: 1X PER DAY 1 PIECE, 8/2,5MG
     Route: 065
     Dates: start: 20150101, end: 20221202
  3. ALBUTEROL SULFATE\IPRATROPIUM BROMIDE [Concomitant]
     Active Substance: ALBUTEROL SULFATE\IPRATROPIUM BROMIDE
     Dosage: NEBULISER, 1/0.2 MG/ML
     Route: 065

REACTIONS (1)
  - Angioedema [Recovering/Resolving]
